FAERS Safety Report 10752398 (Version 1)
Quarter: 2015Q1

REPORT INFORMATION
  Report Type: Spontaneous
  Country: US (occurrence: US)
  Receive Date: 20150130
  Receipt Date: 20150130
  Transmission Date: 20150721
  Serious: Yes (Other)
  Sender: FDA-Public Use
  Company Number: US-GLAXOSMITHKLINE-US2015GSK012163

PATIENT
  Age: 60 Year
  Sex: Female

DRUGS (3)
  1. MELPHALAN [Suspect]
     Active Substance: MELPHALAN
     Indication: BONE MARROW CONDITIONING REGIMEN
     Dosage: 200 MG/M2, UNK
  2. LENALIDOMIDE [Concomitant]
     Active Substance: LENALIDOMIDE
  3. BORTEZOMIB [Concomitant]
     Active Substance: BORTEZOMIB

REACTIONS (7)
  - Mental status changes [Unknown]
  - Encephalopathy [Recovered/Resolved]
  - Restlessness [Unknown]
  - Mucosal inflammation [Recovered/Resolved]
  - Diarrhoea [Recovered/Resolved]
  - Anxiety [Unknown]
  - Tachypnoea [Unknown]
